FAERS Safety Report 10193008 (Version 1)
Quarter: 2014Q2

REPORT INFORMATION
  Report Type: Spontaneous
  Country: US (occurrence: US)
  Receive Date: 20140524
  Receipt Date: 20140524
  Transmission Date: 20141212
  Serious: No
  Sender: FDA-Public Use
  Company Number: US-009507513-2012SP023657

PATIENT
  Age: 6 Year
  Sex: Female

DRUGS (2)
  1. CLARITIN [Suspect]
     Indication: HYPERSENSITIVITY
     Dosage: 10 MG, ONCE
     Route: 048
     Dates: start: 20120415
  2. CLARITIN [Concomitant]
     Dosage: 10 MG, QAM

REACTIONS (2)
  - Accidental exposure to product by child [Recovering/Resolving]
  - Overdose [Recovering/Resolving]
